FAERS Safety Report 7345302-4 (Version None)
Quarter: 2011Q1

REPORT INFORMATION
  Report Type: 
  Country: None (occurrence: None)
  Receive Date: 20110310
  Receipt Date: 20110302
  Transmission Date: 20110831
  Serious: Yes (Death, Other)
  Sender: FDA-Public Use
  Company Number: US-BAXTER-2011BH005115

PATIENT

DRUGS (3)
  1. PROPOXYPHENE HCL AND ACETAMINOPHEN [Suspect]
     Indication: PRODUCT USED FOR UNKNOWN INDICATION
     Route: 065
  2. DIAZEPAM [Suspect]
     Indication: PRODUCT USED FOR UNKNOWN INDICATION
     Route: 065
  3. FLUMAZENIL [Suspect]
     Indication: TOXICITY TO VARIOUS AGENTS
     Route: 065

REACTIONS (2)
  - DEATH [None]
  - CONVULSION [None]
